FAERS Safety Report 7587290-1 (Version None)
Quarter: 2011Q3

REPORT INFORMATION
  Report Type: 
  Country: None (occurrence: None)
  Receive Date: 20110701
  Receipt Date: 20110630
  Transmission Date: 20111222
  Serious: Yes (Life-Threatening, Hospitalization)
  Sender: FDA-Public Use
  Company Number: US-AMGEN-USACT2011033388

PATIENT
  Age: 38 Year
  Sex: Female

DRUGS (8)
  1. CYCLOPHOSPHAMIDE [Concomitant]
     Indication: BREAST CANCER
     Dosage: 600 MG/M2, Q3WK
     Route: 042
     Dates: start: 20100505, end: 20100601
  2. SEROQUEL [Concomitant]
  3. BEVACIZUMAB [Concomitant]
     Indication: BREAST CANCER
     Dosage: UNK UNK, BLINDED
     Route: 042
     Dates: start: 20100505
  4. FILGRASTIM [Suspect]
     Indication: BREAST CANCER
     Dosage: 5 A?G/KG, UNK
     Route: 058
     Dates: start: 20100506, end: 20100601
  5. DOXORUBICIN HCL [Concomitant]
     Indication: BREAST CANCER
     Dosage: 60 MG/M2, Q2WK
     Route: 042
     Dates: start: 20100505, end: 20100601
  6. PEGFILGRASTIM [Suspect]
     Indication: BREAST CANCER
     Dosage: 6 MG, Q3WK
     Route: 058
     Dates: start: 20100506, end: 20100601
  7. GEMFIBROZIL [Concomitant]
  8. PACLITAXEL [Concomitant]
     Indication: BREAST CANCER
     Dosage: 80 MG/M2, Q3WK
     Route: 042
     Dates: start: 20100601

REACTIONS (6)
  - LIPASE INCREASED [None]
  - HYPERTRIGLYCERIDAEMIA [None]
  - PANCREATITIS [None]
  - GLUCOSE TOLERANCE IMPAIRED [None]
  - BLOOD BILIRUBIN INCREASED [None]
  - HYPERCHOLESTEROLAEMIA [None]
